FAERS Safety Report 10753439 (Version 2)
Quarter: 2015Q1

REPORT INFORMATION
  Report Type: Spontaneous
  Country: GB (occurrence: None)
  Receive Date: 20150129
  Receipt Date: 20150220
  Transmission Date: 20150721
  Serious: Yes (Life-Threatening, Hospitalization, Disabling, Other)
  Sender: FDA-Public Use
  Company Number: 2728176

PATIENT
  Age: 15 Year
  Sex: Female
  Weight: 65 kg

DRUGS (9)
  1. MIFAMURTIDE [Suspect]
     Active Substance: MIFAMURTIDE
     Indication: OSTEOSARCOMA
     Dosage: 3.52 MG  MILLIGRAM(S) (UNKNOWN), INTRAVENOUS (NOT OTHERWISE SPECIFIED)
     Route: 042
     Dates: start: 20140602, end: 20140606
  2. MORPHINE SULFATE. [Concomitant]
     Active Substance: MORPHINE SULFATE
  3. DOXORUBICIN [Concomitant]
     Active Substance: DOXORUBICIN
  4. CISPLATIN. [Concomitant]
     Active Substance: CISPLATIN
  5. NORETHISTERONE [Concomitant]
     Active Substance: NORETHINDRONE
  6. MAGNESIUM GLYCEROPHOSPHATE [Concomitant]
     Active Substance: MAGNESIUM GLYCEROPHOSPHATE
  7. METOCLOPRAMIDE. [Concomitant]
     Active Substance: METOCLOPRAMIDE
  8. ONDANSETRON [Concomitant]
     Active Substance: ONDANSETRON
  9. METHOTREXATE [Suspect]
     Active Substance: METHOTREXATE
     Indication: PRODUCT USED FOR UNKNOWN INDICATION
     Dates: start: 20140529

REACTIONS (8)
  - Psychotic disorder [None]
  - Malaise [None]
  - Dysarthria [None]
  - Confusional state [None]
  - Encephalopathy [None]
  - Disorientation [None]
  - Hemiparesis [None]
  - Agitation [None]

NARRATIVE: CASE EVENT DATE: 20140606
